FAERS Safety Report 20762923 (Version 1)
Quarter: 2022Q2

REPORT INFORMATION
  Report Type: Spontaneous
  Country: US (occurrence: None)
  Receive Date: 20220427
  Receipt Date: 20220427
  Transmission Date: 20220721
  Serious: Yes (Disabling, Other)
  Sender: FDA-Public Use
  Company Number: None

PATIENT
  Age: 3 Year
  Sex: Male
  Weight: 18.14 kg

DRUGS (2)
  1. BENZALKONIUM CHLORIDE [Suspect]
     Active Substance: BENZALKONIUM CHLORIDE
  2. BENZALKONIUM CHLORIDE ANTISEPTIC [Suspect]
     Active Substance: BENZALKONIUM CHLORIDE

REACTIONS (4)
  - Application site dermatitis [None]
  - Application site wound [None]
  - Application site irritation [None]
  - Dermatitis contact [None]

NARRATIVE: CASE EVENT DATE: 20220421
